FAERS Safety Report 17059141 (Version 2)
Quarter: 2019Q4

REPORT INFORMATION
  Report Type: Spontaneous
  Country: UA (occurrence: UA)
  Receive Date: 20191121
  Receipt Date: 20191212
  Transmission Date: 20200122
  Serious: Yes (Hospitalization, Other)
  Sender: FDA-Public Use
  Company Number: UA-VALIDUS PHARMACEUTICALS LLC-UA-2019VAL000790

PATIENT

DRUGS (3)
  1. FUROSEMIDE. [Suspect]
     Active Substance: FUROSEMIDE
     Indication: VENTRICULAR FIBRILLATION
  2. FUROSEMIDE. [Suspect]
     Active Substance: FUROSEMIDE
     Indication: BUNDLE BRANCH BLOCK
  3. FUROSEMIDE. [Suspect]
     Active Substance: FUROSEMIDE
     Indication: CARDIAC FAILURE
     Dosage: 40 MG, BID (TWICE A WEEK, APPROXIMATELY 10 YEARS AGO)
     Route: 048

REACTIONS (10)
  - Oedema peripheral [Unknown]
  - Pain in extremity [Unknown]
  - Gout [Unknown]
  - Palpitations [Unknown]
  - Dyspnoea [Unknown]
  - Orthopnoea [Unknown]
  - Fatigue [Unknown]
  - Peripheral swelling [Unknown]
  - Asthenia [Unknown]
  - Body temperature increased [Unknown]

NARRATIVE: CASE EVENT DATE: 20190825
